FAERS Safety Report 12947908 (Version 2)
Quarter: 2016Q4

REPORT INFORMATION
  Report Type: Spontaneous
  Country: KR (occurrence: KR)
  Receive Date: 20161117
  Receipt Date: 20161206
  Transmission Date: 20170207
  Serious: Yes (Other)
  Sender: FDA-Public Use
  Company Number: KR-ROCHE-1855444

PATIENT

DRUGS (1)
  1. LUCENTIS [Suspect]
     Active Substance: RANIBIZUMAB
     Indication: DIABETIC RETINAL OEDEMA
     Dosage: 0.5 MG, QMO (RECEIVED 3 CONSECUTIVE MONTHLY INTRAVITREAL INJECTIONS)
     Route: 031

REACTIONS (1)
  - Visual acuity reduced [Unknown]
